FAERS Safety Report 6274760-1 (Version None)
Quarter: 2009Q3

REPORT INFORMATION
  Report Type: 
  Country: None (occurrence: None)
  Receive Date: 20090721
  Receipt Date: 20070515
  Transmission Date: 20100115
  Serious: Yes (Disabling, Other)
  Sender: FDA-Public Use
  Company Number: US-ASTRAZENECA-2006UW06094

PATIENT
  Age: 21032 Day
  Sex: Female
  Weight: 77.6 kg

DRUGS (24)
  1. SEROQUEL [Suspect]
     Indication: DELUSION
     Dosage: 25MG TO 100 MG
     Route: 048
     Dates: start: 20040405
  2. SEROQUEL [Suspect]
     Indication: DEPRESSION
     Dosage: 25MG TO 100 MG
     Route: 048
     Dates: start: 20040405
  3. SEROQUEL [Suspect]
     Indication: AFFECTIVE DISORDER
     Dosage: 25MG TO 100 MG
     Route: 048
     Dates: start: 20040405
  4. SEROQUEL [Suspect]
     Indication: ANXIETY
     Dosage: 25MG TO 100 MG
     Route: 048
     Dates: start: 20040405
  5. SEROQUEL [Suspect]
     Indication: PANIC ATTACK
     Dosage: 25MG TO 100 MG
     Route: 048
     Dates: start: 20040405
  6. ZOLOFT [Concomitant]
     Dates: start: 20040401
  7. ZOLOFT [Concomitant]
     Route: 048
     Dates: start: 20050311
  8. LISINOPRIL [Concomitant]
     Route: 048
     Dates: start: 20050311
  9. METFORMIN HCL [Concomitant]
     Route: 048
     Dates: start: 20050311
  10. TYLENOL (CAPLET) [Concomitant]
     Indication: PAIN
     Route: 048
     Dates: start: 20060203
  11. ULTRAM [Concomitant]
     Route: 048
     Dates: start: 20060203
  12. LANSOPRAZOLE [Concomitant]
     Route: 048
     Dates: start: 20060203
  13. CIPROFLOXACIN [Concomitant]
     Route: 048
     Dates: start: 20060203
  14. GLIMEPIRIDE [Concomitant]
     Route: 048
     Dates: start: 20060101
  15. LACTULOSE [Concomitant]
     Route: 048
     Dates: start: 20060101
  16. CALCIUM GLUCONATE [Concomitant]
     Route: 048
     Dates: start: 20060202
  17. DILAUDID [Concomitant]
     Route: 048
     Dates: start: 20060202
  18. ZOLPIDEM TARTRATE [Concomitant]
     Route: 048
     Dates: start: 20060402
  19. ACETAMINOPHEN [Concomitant]
     Route: 048
     Dates: start: 20060402
  20. ZOFRAN [Concomitant]
     Route: 048
     Dates: start: 20070223
  21. MORPHINE [Concomitant]
     Dosage: 1 TO 4 MG
     Route: 048
     Dates: start: 20070223
  22. PROTONIX [Concomitant]
     Route: 048
     Dates: start: 20070223
  23. RIFAXIMIN [Concomitant]
     Route: 048
     Dates: start: 20070306
  24. TRAMADOL HCL [Concomitant]
     Route: 048
     Dates: start: 20060402

REACTIONS (3)
  - DIABETES MELLITUS [None]
  - DIABETIC FOOT [None]
  - TYPE 2 DIABETES MELLITUS [None]
